FAERS Safety Report 18228012 (Version 1)
Quarter: 2020Q3

REPORT INFORMATION
  Report Type: Report from Study
  Country: US (occurrence: US)
  Receive Date: 20200903
  Receipt Date: 20200903
  Transmission Date: 20201103
  Serious: Yes (Hospitalization)
  Sender: FDA-Public Use
  Company Number: US-GILEAD-2020-0492803

PATIENT
  Sex: Female

DRUGS (14)
  1. AZTREONAM LYSINE [Suspect]
     Active Substance: AZTREONAM LYSINE
     Indication: CYSTIC FIBROSIS
     Dosage: 1 DOSAGE FORM, TID, 28 DAYS ON, 28 DAYS OFF
     Route: 055
     Dates: start: 20140326
  2. TACROLIMUS. [Concomitant]
     Active Substance: TACROLIMUS
  3. AZTREONAM LYSINE [Suspect]
     Active Substance: AZTREONAM LYSINE
     Indication: CYSTIC FIBROSIS LUNG
  4. GABAPENTIN. [Concomitant]
     Active Substance: GABAPENTIN
  5. PULMOZYME [Concomitant]
     Active Substance: DORNASE ALFA
  6. NOVOLOG [Concomitant]
     Active Substance: INSULIN ASPART
  7. PREDNISONE. [Concomitant]
     Active Substance: PREDNISONE
  8. SMZ?TMP DS [Concomitant]
     Active Substance: SULFAMETHOXAZOLE\TRIMETHOPRIM
  9. VALGANCICLOVIR. [Concomitant]
     Active Substance: VALGANCICLOVIR
  10. AMOXICILLIN. [Concomitant]
     Active Substance: AMOXICILLIN
  11. FAMOTIDINE. [Concomitant]
     Active Substance: FAMOTIDINE
  12. MYCOPHENOLATE [Concomitant]
     Active Substance: MYCOPHENOLIC ACID
  13. TRIKAFTA [Concomitant]
     Active Substance: ELEXACAFTOR\IVACAFTOR\TEZACAFTOR
  14. ZARXIO [Concomitant]
     Active Substance: FILGRASTIM-SNDZ

REACTIONS (1)
  - Surgery [Unknown]
